FAERS Safety Report 25107522 (Version 3)
Quarter: 2025Q2

REPORT INFORMATION
  Report Type: Report from Study
  Country: TW (occurrence: TW)
  Receive Date: 20250321
  Receipt Date: 20250426
  Transmission Date: 20250717
  Serious: Yes (Hospitalization, Other)
  Sender: ABBVIE
  Company Number: TW-ABBVIE-6183438

PATIENT
  Age: 87 Year
  Sex: Male
  Weight: 50 kg

DRUGS (5)
  1. RINVOQ [Suspect]
     Active Substance: UPADACITINIB
     Indication: Rheumatoid arthritis
     Dosage: FORM STRENGTH: 15 MG
     Route: 048
     Dates: start: 20240930, end: 20250311
  2. TAMSULOSIN [Concomitant]
     Active Substance: TAMSULOSIN
     Indication: Benign prostatic hyperplasia
     Route: 048
     Dates: start: 20240930
  3. FAMOTIDINE [Concomitant]
     Active Substance: FAMOTIDINE
     Indication: Gastrointestinal disorder
     Route: 048
     Dates: start: 20240930
  4. PHENAZOPYRIDINE [Concomitant]
     Active Substance: PHENAZOPYRIDINE
     Indication: Urinary tract infection
     Route: 048
     Dates: start: 20250321, end: 20250328
  5. PREDNISOLONE [Concomitant]
     Active Substance: PREDNISOLONE
     Indication: Antiinflammatory therapy
     Route: 048
     Dates: start: 20240930

REACTIONS (7)
  - Asthenia [Recovered/Resolved]
  - Herpes zoster [Recovered/Resolved]
  - Decreased appetite [Recovered/Resolved]
  - Pulmonary fibrosis [Unknown]
  - Aortic arteriosclerosis [Unknown]
  - Vertebral osteophyte [Unknown]
  - Osteoporosis [Unknown]

NARRATIVE: CASE EVENT DATE: 20250311
